FAERS Safety Report 14277782 (Version 1)
Quarter: 2017Q4

REPORT INFORMATION
  Report Type: Spontaneous
  Country: JP (occurrence: JP)
  Receive Date: 20171212
  Receipt Date: 20171212
  Transmission Date: 20180321
  Serious: Yes (Hospitalization, Other)
  Sender: FDA-Public Use
  Company Number: JP-JNJFOC-20171210259

PATIENT
  Age: 28 Year
  Sex: Female

DRUGS (3)
  1. ETHYL LOFLAZEPATE [Concomitant]
     Active Substance: ETHYL LOFLAZEPATE
     Route: 048
  2. ZOLPIDEM TARTRATE. [Concomitant]
     Active Substance: ZOLPIDEM TARTRATE
     Route: 048
  3. TRAMCET [Suspect]
     Active Substance: ACETAMINOPHEN\TRAMADOL
     Indication: PAIN
     Route: 048

REACTIONS (3)
  - Acute hepatic failure [Recovering/Resolving]
  - Drug diversion [Unknown]
  - Overdose [Unknown]
